FAERS Safety Report 15726236 (Version 1)
Quarter: 2018Q4

REPORT INFORMATION
  Report Type: Spontaneous
  Country: US (occurrence: US)
  Receive Date: 20181216
  Receipt Date: 20181216
  Transmission Date: 20190205
  Serious: Yes (Other)
  Sender: FDA-Public Use
  Company Number: US-SUPERNUS PHARMACEUTICALS, INC.-2018SUP00189

PATIENT
  Sex: Male
  Weight: 114.29 kg

DRUGS (12)
  1. TROKENDI XR [Suspect]
     Active Substance: TOPIRAMATE
     Dosage: 200 MG, 1X/DAY
     Route: 048
     Dates: start: 201805
  2. UNSPECIFIED OPIATES [Concomitant]
     Active Substance: UNSPECIFIED INGREDIENT
  3. KEPPRA [Concomitant]
     Active Substance: LEVETIRACETAM
     Dosage: 1000 MG, 2X/DAY
  4. MS CONTIN [Concomitant]
     Active Substance: MORPHINE SULFATE
     Dosage: 60 MG, 3X/DAY
  5. OMEPRAZOLE. [Concomitant]
     Active Substance: OMEPRAZOLE
     Dosage: 40 MG, 1X/DAY
  6. TROKENDI XR [Suspect]
     Active Substance: TOPIRAMATE
     Indication: PARTIAL SEIZURES
     Dosage: 200 MG, 1X/DAY
     Route: 048
  7. SERTRALINE [Concomitant]
     Active Substance: SERTRALINE HYDROCHLORIDE
     Dosage: 200 MG, 1X/DAY
  8. DILAUDID [Concomitant]
     Active Substance: HYDROMORPHONE HYDROCHLORIDE
     Dosage: 8 MG, 4X/DAY
  9. IRON [Concomitant]
     Active Substance: IRON
  10. GABAPENTIN. [Concomitant]
     Active Substance: GABAPENTIN
     Dosage: 600 MG, 1X/DAY AT NIGHT
  11. VALIUM [Concomitant]
     Active Substance: DIAZEPAM
     Dosage: 5 MG, 3X/DAY AS NEEDED
  12. LOSARTAN. [Concomitant]
     Active Substance: LOSARTAN
     Dosage: 100 MG, 1X/DAY

REACTIONS (3)
  - Drug withdrawal convulsions [Recovering/Resolving]
  - Seizure [Recovering/Resolving]
  - Drug effect incomplete [Not Recovered/Not Resolved]
